FAERS Safety Report 4742579-6 (Version None)
Quarter: 2005Q3

REPORT INFORMATION
  Report Type: 
  Country: None (occurrence: None)
  Receive Date: 20050811
  Receipt Date: 20050610
  Transmission Date: 20060218
  Serious: Yes (Other)
  Sender: FDA-Public Use
  Company Number: JP-ROCHE-407233

PATIENT
  Age: 58 Year
  Sex: Male
  Weight: 87 kg

DRUGS (11)
  1. HORIZON [Suspect]
     Indication: PREMEDICATION
     Dosage: AT 10.30.
     Route: 048
     Dates: start: 20020913, end: 20020913
  2. SEVOFLURANE [Suspect]
     Indication: SEDATION
     Dosage: AT 14.55.  (0.6 %) INDICATION REPORTED AS SEDATION AND ANALGESIA.
     Route: 055
     Dates: start: 20020913, end: 20020913
  3. DIPRIVAN [Suspect]
     Indication: SEDATION
     Dosage: AT 13.15
     Route: 042
     Dates: start: 20020913, end: 20020913
  4. CARBOCAIN [Suspect]
     Indication: SEDATION
     Dosage: AT 14.00 HOURS.
     Route: 008
     Dates: start: 20020913, end: 20020913
  5. CARBOCAIN [Suspect]
     Dosage: AT 14.50 HOURS
     Route: 008
     Dates: start: 20020913, end: 20020913
  6. CARBOCAIN [Suspect]
     Dosage: AT 15.30 HOURS.
     Route: 008
     Dates: start: 20020913, end: 20020913
  7. CARBOCAIN [Suspect]
     Dosage: AT 16.15 HOURS.
     Route: 008
     Dates: start: 20020913, end: 20020913
  8. FENTANYL CITRATE [Suspect]
     Dosage: AT 13.50.
     Route: 008
     Dates: start: 20020913, end: 20020913
  9. GLIBENCLAMIDE [Concomitant]
     Route: 048
  10. BUPIVACAINE HCL [Concomitant]
     Dosage: 0.5 %.
     Route: 008
     Dates: start: 20020913, end: 20020913
  11. NITROUS OXIDE [Concomitant]
     Indication: SEDATION
     Dosage: AT 14.55.  INDICATION REPORTED AS SEDATION AND ANALGESIA.
     Route: 055
     Dates: start: 20020913, end: 20020913

REACTIONS (8)
  - BLOOD PRESSURE DECREASED [None]
  - DEVICE FAILURE [None]
  - DYSPNOEA [None]
  - INADEQUATE ANALGESIA [None]
  - OXYGEN SATURATION DECREASED [None]
  - PROCEDURAL COMPLICATION [None]
  - SPEECH DISORDER [None]
  - TONGUE PARALYSIS [None]
